FAERS Safety Report 5370209-1 (Version None)
Quarter: 2007Q2

REPORT INFORMATION
  Report Type: 
  Country: None (occurrence: None)
  Receive Date: 20070626
  Receipt Date: 20070618
  Transmission Date: 20071010
  Serious: Yes (Other)
  Sender: FDA-Public Use
  Company Number: US-ASTRAZENECA-2007UW14537

PATIENT
  Age: 74 Year
  Sex: Female
  Weight: 57.6 kg

DRUGS (5)
  1. TAMOXIFEN CITRATE [Suspect]
     Indication: BREAST CANCER
     Route: 048
  2. SYNTHROID [Concomitant]
     Route: 048
  3. PREDNISONE TAB [Concomitant]
     Route: 048
  4. LISINOPRIL [Concomitant]
     Route: 048
  5. SINEMET [Concomitant]
     Route: 048

REACTIONS (3)
  - OSTEOPENIA [None]
  - PARKINSON'S DISEASE [None]
  - WEIGHT DECREASED [None]
